FAERS Safety Report 19645921 (Version 1)
Quarter: 2021Q3

REPORT INFORMATION
  Report Type: Report from Study
  Country: PL (occurrence: PL)
  Receive Date: 20210802
  Receipt Date: 20210802
  Transmission Date: 20211014
  Serious: Yes (Hospitalization)
  Sender: FDA-Public Use
  Company Number: PL-ROCHE-2878220

PATIENT
  Age: 72 Year
  Sex: Female
  Weight: 75 kg

DRUGS (17)
  1. CARBOPLATIN. [Suspect]
     Active Substance: CARBOPLATIN
     Indication: SMALL CELL LUNG CANCER EXTENSIVE STAGE
     Dosage: ON 11/FEB/2011, SHE RECEIVED MOST RECENT DOSE OF CARBOPLATIN AT 423.1 MG PRIOR TO ONSET OF SAE.
     Route: 042
     Dates: start: 20201209
  2. TERTENSIF SR [Concomitant]
     Active Substance: INDAPAMIDE
     Indication: HYPERTENSION
     Route: 048
     Dates: start: 2016
  3. SYMBICORT [Concomitant]
     Active Substance: BUDESONIDE\FORMOTEROL FUMARATE DIHYDRATE
     Indication: ASTHMA
     Route: 055
     Dates: start: 2018
  4. ACCOFIL [Concomitant]
     Active Substance: FILGRASTIM
     Route: 058
     Dates: start: 20210214, end: 20210218
  5. BISOCARD [Concomitant]
     Active Substance: BISOPROLOL
     Indication: HYPERTENSION
     Route: 048
     Dates: start: 2016
  6. ZOFRAN [Concomitant]
     Active Substance: ONDANSETRON HYDROCHLORIDE
     Route: 048
     Dates: start: 20201211
  7. BLOOD [Concomitant]
     Active Substance: WHOLE BLOOD
     Indication: ANAEMIA
     Route: 042
     Dates: start: 20210210, end: 20210210
  8. ONDANSETRON [Concomitant]
     Active Substance: ONDANSETRON
     Route: 042
     Dates: start: 20210211, end: 20210213
  9. PARACETAMOL [Concomitant]
     Active Substance: ACETAMINOPHEN
     Route: 048
     Dates: start: 20210214
  10. PARACETAMOL [Concomitant]
     Active Substance: ACETAMINOPHEN
     Route: 048
     Dates: start: 20210123, end: 20210127
  11. PLACEBO [Suspect]
     Active Substance: UNSPECIFIED INGREDIENT
     Indication: SMALL CELL LUNG CANCER EXTENSIVE STAGE
     Dosage: START DATE OF MOST RECENT DOSE OF STUDY DRUG PRIOR TO AE/SAE: 11/FEB/2021
     Route: 042
     Dates: start: 20201209
  12. ETOPOSIDE. [Suspect]
     Active Substance: ETOPOSIDE
     Indication: SMALL CELL LUNG CANCER EXTENSIVE STAGE
     Dosage: ON 11/FEB/2011, SHE RECEIVED MOST RECENT DOSE OF ETOPOSIDE AT 179 MG PRIOR TO ONSET OF SAE.
     Route: 042
     Dates: start: 20201209
  13. NORMAL SALINE [Concomitant]
     Active Substance: SODIUM CHLORIDE
     Route: 042
     Dates: start: 20210211, end: 20210213
  14. METOCLOPRAMIDUM [Concomitant]
     Route: 042
     Dates: start: 20210211, end: 20210213
  15. ACCOFIL [Concomitant]
     Active Substance: FILGRASTIM
     Route: 058
     Dates: start: 20210123, end: 20210127
  16. ATEZOLIZUMAB. [Suspect]
     Active Substance: ATEZOLIZUMAB
     Indication: SMALL CELL LUNG CANCER EXTENSIVE STAGE
     Dosage: ON 11/FEB/2011, SHE RECEIVED MOST RECENT DOSE OF ATEZOLIZUMAB AT 1200 MG PRIOR TO ONSET OF SAE.
     Route: 042
     Dates: start: 20201209
  17. EUTHYROX [Concomitant]
     Active Substance: LEVOTHYROXINE SODIUM
     Indication: HYPOTHYROIDISM
     Route: 048
     Dates: start: 2015

REACTIONS (1)
  - Pancytopenia [Recovered/Resolved]

NARRATIVE: CASE EVENT DATE: 20210223
